FAERS Safety Report 7380747-8 (Version None)
Quarter: 2011Q1

REPORT INFORMATION
  Report Type: 
  Country: None (occurrence: None)
  Receive Date: 20110329
  Receipt Date: 20110318
  Transmission Date: 20110831
  Serious: Yes (Death, Hospitalization)
  Sender: FDA-Public Use
  Company Number: A0757972A

PATIENT
  Age: 76 Year
  Sex: Female
  Weight: 52.3 kg

DRUGS (7)
  1. NITROGLYCERIN [Concomitant]
  2. AVANDIA [Suspect]
     Dosage: 8MG PER DAY
     Route: 048
     Dates: start: 20050101, end: 20060907
  3. CARBIDOPA [Concomitant]
  4. LASIX [Concomitant]
  5. METFORMIN HCL [Concomitant]
  6. IRON [Concomitant]
  7. GLUCOPHAGE [Concomitant]

REACTIONS (4)
  - CARDIAC FAILURE CONGESTIVE [None]
  - CAROTID ARTERY OCCLUSION [None]
  - MYOCARDIAL INFARCTION [None]
  - DEATH [None]
